FAERS Safety Report 4728737-5 (Version None)
Quarter: 2005Q3

REPORT INFORMATION
  Report Type: 
  Country: None (occurrence: None)
  Receive Date: 20050729
  Receipt Date: 20050602
  Transmission Date: 20060218
  Serious: Yes (Other)
  Sender: FDA-Public Use
  Company Number: JU0501

PATIENT
  Age: 58 Year
  Sex: Female
  Weight: 58.2 kg

DRUGS (1)
  1. LOTRONEX [Suspect]
     Indication: IRRITABLE BOWEL SYNDROME
     Dosage: 1MG SEE DOSAGE TEXT
     Route: 048
     Dates: start: 20040226

REACTIONS (1)
  - LYMPHOMA [None]
